FAERS Safety Report 18622545 (Version 1)
Quarter: 2020Q4

REPORT INFORMATION
  Report Type: Spontaneous
  Country: CN (occurrence: CN)
  Receive Date: 20201216
  Receipt Date: 20201216
  Transmission Date: 20210114
  Serious: Yes (Other)
  Sender: FDA-Public Use
  Company Number: CN-PFIZER INC-2020492373

PATIENT
  Age: 63 Year
  Sex: Male

DRUGS (4)
  1. ANZATAX (PACLITAXEL) [Suspect]
     Active Substance: PACLITAXEL
     Indication: LUNG NEOPLASM MALIGNANT
     Dosage: 280 MG, 1X/DAY
     Route: 041
     Dates: start: 20201126, end: 20201126
  2. DEXAMETHASONE ACETATE [Concomitant]
     Active Substance: DEXAMETHASONE ACETATE
     Dosage: UNK (12 AND 6 HOURS BEFORE PACLITAXEL ADMINISTRATION)
     Dates: start: 20201126
  3. DEXAMETHASONE ACETATE [Concomitant]
     Active Substance: DEXAMETHASONE ACETATE
     Indication: PREMEDICATION
     Dosage: UNK (12 AND 6 HOURS BEFORE PACLITAXEL ADMINISTRATION)
     Dates: start: 20201125
  4. ANZATAX (PACLITAXEL) [Suspect]
     Active Substance: PACLITAXEL
     Dosage: 310.1 MG, UNK

REACTIONS (3)
  - Chest discomfort [Recovering/Resolving]
  - Off label use [Unknown]
  - Incorrect dose administered [Unknown]

NARRATIVE: CASE EVENT DATE: 20201126
